FAERS Safety Report 7627649-7 (Version None)
Quarter: 2011Q3

REPORT INFORMATION
  Report Type: 
  Country: None (occurrence: None)
  Receive Date: 20110713
  Receipt Date: 20110628
  Transmission Date: 20111222
  Serious: Yes (Death)
  Sender: FDA-Public Use
  Company Number: AUR-APL-2011-03761

PATIENT
  Age: 38 Year
  Sex: Male

DRUGS (8)
  1. DIAZEPAM [Suspect]
     Indication: PRODUCT USED FOR UNKNOWN INDICATION
  2. METHADONE HCL [Suspect]
     Indication: PRODUCT USED FOR UNKNOWN INDICATION
  3. ALCOHOL (ETHANOL) [Suspect]
     Indication: PRODUCT USED FOR UNKNOWN INDICATION
  4. MIRTAZAPINE [Suspect]
     Indication: PRODUCT USED FOR UNKNOWN INDICATION
  5. DIHYDROCODEINE BITARTRATE INJ [Suspect]
     Indication: PRODUCT USED FOR UNKNOWN INDICATION
  6. ZYPREXA [Concomitant]
  7. CHLORDIAZEPOXIDE [Suspect]
     Indication: PRODUCT USED FOR UNKNOWN INDICATION
  8. OMEPRAZOLE [Concomitant]

REACTIONS (2)
  - TOXICITY TO VARIOUS AGENTS [None]
  - INFLUENZA LIKE ILLNESS [None]
